FAERS Safety Report 24794483 (Version 2)
Quarter: 2025Q1

REPORT INFORMATION
  Report Type: Spontaneous
  Country: US (occurrence: US)
  Receive Date: 20241231
  Receipt Date: 20250108
  Transmission Date: 20250409
  Serious: No
  Sender: SANOFI AVENTIS
  Company Number: US-SA-2024SA384375

PATIENT
  Age: 23 Year
  Sex: Male

DRUGS (2)
  1. DUPIXENT [Suspect]
     Active Substance: DUPILUMAB
     Indication: Dermatitis atopic
     Route: 058
     Dates: start: 202411, end: 202411
  2. DUPIXENT [Suspect]
     Active Substance: DUPILUMAB
     Dosage: 300 MG, QOW
     Route: 058
     Dates: start: 2024

REACTIONS (5)
  - Injection site erythema [Recovered/Resolved]
  - Dermatitis atopic [Recovered/Resolved]
  - Rash [Recovering/Resolving]
  - Dermatitis [Recovering/Resolving]
  - Rash vesicular [Recovering/Resolving]

NARRATIVE: CASE EVENT DATE: 20240101
